FAERS Safety Report 20807150 (Version 2)
Quarter: 2022Q4

REPORT INFORMATION
  Report Type: Spontaneous
  Country: US (occurrence: US)
  Receive Date: 20220510
  Receipt Date: 20221012
  Transmission Date: 20230113
  Serious: No
  Sender: FDA-Public Use
  Company Number: US-Blueprint Medicines Corporation-80

PATIENT
  Age: 35 Year
  Sex: Female

DRUGS (2)
  1. AYVAKIT [Suspect]
     Active Substance: AVAPRITINIB
     Indication: Systemic mastocytosis
     Route: 065
     Dates: start: 20211214
  2. AYVAKIT [Suspect]
     Active Substance: AVAPRITINIB
     Route: 048
     Dates: start: 20211214

REACTIONS (9)
  - Premature menopause [Unknown]
  - Hypomenorrhoea [Unknown]
  - Menstrual disorder [Unknown]
  - Blood folate decreased [Unknown]
  - Fluid retention [Unknown]
  - Periorbital swelling [Recovering/Resolving]
  - Swelling face [Recovering/Resolving]
  - Hair colour changes [Unknown]
  - Bone disorder [Unknown]

NARRATIVE: CASE EVENT DATE: 20220428
